FAERS Safety Report 16681209 (Version 1)
Quarter: 2019Q3

REPORT INFORMATION
  Report Type: Spontaneous
  Country: GB (occurrence: GB)
  Receive Date: 20190808
  Receipt Date: 20190808
  Transmission Date: 20191004
  Serious: Yes (Death, Hospitalization, Other)
  Sender: FDA-Public Use
  Company Number: GB-TEVA-2019-GB-1089305

PATIENT
  Age: 89 Year
  Sex: Male

DRUGS (2)
  1. PARACETAMOL [Suspect]
     Active Substance: ACETAMINOPHEN
  2. IBUPROFEN. [Suspect]
     Active Substance: IBUPROFEN
     Dates: end: 20180605

REACTIONS (2)
  - Upper gastrointestinal haemorrhage [Fatal]
  - Overdose [Fatal]

NARRATIVE: CASE EVENT DATE: 20180528
